FAERS Safety Report 8616493-X (Version None)
Quarter: 2012Q3

REPORT INFORMATION
  Report Type: 
  Country: None (occurrence: None)
  Receive Date: 20120823
  Receipt Date: 20120820
  Transmission Date: 20120928
  Serious: Yes (Death, Other)
  Sender: FDA-Public Use
  Company Number: US-AMGEN-USASP2011018216

PATIENT
  Age: 71 Year
  Sex: Female

DRUGS (3)
  1. NAVELBINE [Concomitant]
     Dosage: UNK
  2. NEUPOGEN [Suspect]
     Indication: CHEMOTHERAPY
     Dosage: UNK
     Dates: start: 20110131, end: 20110610
  3. XGEVA [Suspect]
     Indication: METASTASES TO BONE
     Dosage: UNK

REACTIONS (7)
  - METASTASES TO LUNG [None]
  - METASTASES TO CENTRAL NERVOUS SYSTEM [None]
  - ARTHROPOD BITE [None]
  - METASTASES TO LIVER [None]
  - METASTASES TO BONE [None]
  - BREAST CANCER METASTATIC [None]
  - URTICARIA [None]
